FAERS Safety Report 8262697-8 (Version None)
Quarter: 2012Q2

REPORT INFORMATION
  Report Type: 
  Country: None (occurrence: None)
  Receive Date: 20120405
  Receipt Date: 20120327
  Transmission Date: 20120825
  Serious: Yes (Other)
  Sender: FDA-Public Use
  Company Number: PHHY2012FR028135

PATIENT
  Age: 56 Year
  Sex: Male

DRUGS (3)
  1. CYCLOSPORINE [Suspect]
     Indication: HEART AND LUNG TRANSPLANT
     Dosage: TARGET BLOOD LEVEL: 280-320 NG/ML
  2. MYCOPHENOLATE MOFETIL [Suspect]
     Indication: HEART AND LUNG TRANSPLANT
     Dosage: 2 G/DAY
  3. PREDNISOLONE [Suspect]
     Indication: HEART AND LUNG TRANSPLANT
     Dosage: 20 MG/DAY

REACTIONS (12)
  - ALTERNARIA INFECTION [None]
  - ENDOCARDITIS BACTERIAL [None]
  - MEDIASTINITIS [None]
  - ACUTE PULMONARY OEDEMA [None]
  - SKIN NECROSIS [None]
  - SKIN LESION [None]
  - PHAEHYPHOMYCOSIS [None]
  - CANDIDIASIS [None]
  - CONFUSIONAL STATE [None]
  - SUBCUTANEOUS ABSCESS [None]
  - PNEUMONIA BACTERIAL [None]
  - HALLUCINATION [None]
